FAERS Safety Report 22393804 (Version 1)
Quarter: 2023Q2

REPORT INFORMATION
  Report Type: Spontaneous
  Country: US (occurrence: None)
  Receive Date: 20230531
  Receipt Date: 20230531
  Transmission Date: 20230721
  Serious: Yes (Other)
  Sender: FDA-Public Use
  Company Number: None

PATIENT
  Age: 31 Year
  Sex: Female
  Weight: 58.5 kg

DRUGS (6)
  1. SPRAVATO [Suspect]
     Active Substance: ESKETAMINE
     Indication: Depression
     Dosage: 2 NASAL SPRAY UNITS 2X /WEEK RESPIRATORY (INHALATION)
     Route: 055
     Dates: start: 20230511, end: 20230525
  2. LAMOTRIGINE EXTENDED RELEASE [Concomitant]
     Active Substance: LAMOTRIGINE
  3. DULOXETINE [Concomitant]
     Active Substance: DULOXETINE
  4. VYVANSE [Concomitant]
     Active Substance: LISDEXAMFETAMINE DIMESYLATE
  5. IBUPROFEN [Concomitant]
     Active Substance: IBUPROFEN
  6. ACETAMINOPHEN [Concomitant]
     Active Substance: ACETAMINOPHEN

REACTIONS (9)
  - Nausea [None]
  - Agitation [None]
  - Anger [None]
  - Dyspepsia [None]
  - Therapy interrupted [None]
  - Suicidal ideation [None]
  - Nightmare [None]
  - Crying [None]
  - Fall [None]
